FAERS Safety Report 22260787 (Version 1)
Quarter: 2023Q2

REPORT INFORMATION
  Report Type: Report from Study
  Country: US (occurrence: None)
  Receive Date: 20230427
  Receipt Date: 20230427
  Transmission Date: 20230721
  Serious: Yes (Death, Hospitalization)
  Sender: FDA-Public Use
  Company Number: US-ROCHE-3336544

PATIENT
  Age: 88 Year
  Sex: Male
  Weight: 95.5 kg

DRUGS (5)
  1. ATEZOLIZUMAB [Suspect]
     Active Substance: ATEZOLIZUMAB
     Indication: Bladder transitional cell carcinoma
     Dosage: LAST ADMINISTERED DATE 24/FEB/2023?OVER 30-60 MINUTES ON DAY 1 OF EACH CYCLE, TREATMENT REPEATS EVER
     Route: 041
     Dates: start: 20221101
  2. GEMCITABINE HYDROCHLORIDE [Suspect]
     Active Substance: GEMCITABINE HYDROCHLORIDE
     Indication: Bladder transitional cell carcinoma
     Dosage: FOR SIX WEEKS ?LAST ADMINISTERED DATE 24/FEB/2023
     Route: 042
     Dates: start: 20221101
  3. FLUOROURACIL [Suspect]
     Active Substance: FLUOROURACIL
     Indication: Bladder transitional cell carcinoma
     Dosage: ON SAME DAYS AS DOSES 1-5 AND 16-20 OF RT
     Route: 042
     Dates: start: 20221101
  4. MITOMYCIN C [Suspect]
     Active Substance: MITOMYCIN
     Indication: Bladder transitional cell carcinoma
     Dosage: ON SAME DAY AS DOSE 1 OF RT
     Route: 042
     Dates: start: 20221101
  5. CISPLATIN [Suspect]
     Active Substance: CISPLATIN
     Indication: Bladder transitional cell carcinoma
     Dosage: FOR SIX WEEKS
     Route: 042
     Dates: start: 20221101

REACTIONS (7)
  - Death [Fatal]
  - Depressed level of consciousness [Unknown]
  - Pneumonia [Unknown]
  - Hypercapnia [Unknown]
  - Hypoxia [Unknown]
  - Lethargy [Unknown]
  - Troponin I increased [Unknown]

NARRATIVE: CASE EVENT DATE: 20230316
